FAERS Safety Report 5032523-9 (Version None)
Quarter: 2006Q2

REPORT INFORMATION
  Report Type: 
  Country: None (occurrence: None)
  Receive Date: 20060622
  Receipt Date: 20060426
  Transmission Date: 20061013
  Serious: Yes (Death)
  Sender: FDA-Public Use
  Company Number: US-BRISTOL-MYERS SQUIBB COMPANY-13357512

PATIENT
  Age: 63 Year
  Sex: Male
  Weight: 91 kg

DRUGS (10)
  1. GLUCOPHAGE [Suspect]
     Indication: DIABETES MELLITUS
     Route: 048
     Dates: start: 20040630
  2. LANTUS [Concomitant]
     Dosage: DOSAGE FORM = UNIT
     Dates: start: 20050321
  3. TRICOR [Concomitant]
     Route: 048
     Dates: start: 20060221
  4. PAXIL CR [Concomitant]
     Route: 048
     Dates: start: 20060208
  5. ALTACE [Concomitant]
     Route: 048
     Dates: start: 20051108
  6. ELAVIL [Concomitant]
     Route: 048
     Dates: start: 20050808
  7. ATENOLOL [Concomitant]
     Route: 048
     Dates: start: 20040630
  8. RESTORIL [Concomitant]
     Route: 048
     Dates: start: 20040630
  9. ATACAND [Concomitant]
     Route: 048
     Dates: start: 20040630
  10. GLUCOTROL XL [Concomitant]
     Route: 048
     Dates: start: 20040630

REACTIONS (1)
  - MYOCARDIAL INFARCTION [None]
